FAERS Safety Report 6318455-4 (Version None)
Quarter: 2009Q3

REPORT INFORMATION
  Report Type: 
  Country: None (occurrence: None)
  Receive Date: 20090819
  Receipt Date: 20090807
  Transmission Date: 20100115
  Serious: Yes (Other)
  Sender: FDA-Public Use
  Company Number: US-1170283

PATIENT
  Sex: Female
  Weight: 99.3377 kg

DRUGS (2)
  1. MIOSTAT [Suspect]
     Indication: CATARACT OPERATION
     Dosage: 1.5 ML INTRAOCULAR
     Route: 031
     Dates: start: 20090518, end: 20090518
  2. DUOVISC [Concomitant]

REACTIONS (2)
  - POST PROCEDURAL COMPLICATION [None]
  - VISUAL IMPAIRMENT [None]
